FAERS Safety Report 23727246 (Version 1)
Quarter: 2024Q2

REPORT INFORMATION
  Report Type: Spontaneous
  Country: JP (occurrence: JP)
  Receive Date: 20240410
  Receipt Date: 20240410
  Transmission Date: 20240715
  Serious: Yes (Death, Other)
  Sender: FDA-Public Use
  Company Number: JP-TAKEDA-2024TJP005151

PATIENT

DRUGS (1)
  1. ZEJULA [Suspect]
     Active Substance: NIRAPARIB
     Indication: Ovarian cancer
     Dosage: 200 MG, QD (200 MILLIGRAM, QD)
     Route: 048
     Dates: start: 20220901, end: 20230601

REACTIONS (2)
  - Ovarian cancer [Fatal]
  - Blood creatinine increased [Not Recovered/Not Resolved]
